FAERS Safety Report 13517195 (Version 1)
Quarter: 2017Q2

REPORT INFORMATION
  Report Type: Spontaneous
  Country: US (occurrence: US)
  Receive Date: 20170505
  Receipt Date: 20170505
  Transmission Date: 20170830
  Serious: Yes (Hospitalization)
  Sender: FDA-Public Use
  Company Number: None

PATIENT
  Age: 73 Year
  Sex: Female
  Weight: 94.3 kg

DRUGS (12)
  1. PLAVIX [Concomitant]
     Active Substance: CLOPIDOGREL BISULFATE
  2. LASIX [Concomitant]
     Active Substance: FUROSEMIDE
  3. COLCRYS [Concomitant]
     Active Substance: COLCHICINE
  4. METOPROLOL TARTRATE. [Suspect]
     Active Substance: METOPROLOL TARTRATE
     Indication: HYPERTENSION
     Route: 048
  5. AMLODIPINE [Concomitant]
     Active Substance: AMLODIPINE BESYLATE
  6. ALPHAGAN P [Concomitant]
     Active Substance: BRIMONIDINE TARTRATE
  7. CYANOCOBALAMI [Concomitant]
  8. CATAPRES [Concomitant]
     Active Substance: CLONIDINE HYDROCHLORIDE
  9. NEURONTIN [Concomitant]
     Active Substance: GABAPENTIN
  10. APAP [Concomitant]
     Active Substance: ACETAMINOPHEN
  11. ECOTRIN [Concomitant]
     Active Substance: ASPIRIN
  12. VITD3 [Concomitant]

REACTIONS (2)
  - Bradycardia [None]
  - Therapy change [None]

NARRATIVE: CASE EVENT DATE: 20170128
